FAERS Safety Report 8916623 (Version 1)
Quarter: 2012Q4

REPORT INFORMATION
  Report Type: 
  Country: GB (occurrence: GB)
  Receive Date: 20121120
  Receipt Date: 20121120
  Transmission Date: 20130627
  Serious: Yes (Death)
  Sender: FDA-Public Use
  Company Number: GB-ABBOTT-12P-167-1010362-00

PATIENT
  Age: 20 Year
  Sex: Male

DRUGS (1)
  1. DEPAKOTE [Suspect]
     Route: 048
     Dates: start: 2012, end: 201209

REACTIONS (1)
  - Completed suicide [Fatal]
